FAERS Safety Report 15670591 (Version 1)
Quarter: 2018Q4

REPORT INFORMATION
  Report Type: Report from Study
  Country: BE (occurrence: BE)
  Receive Date: 20181129
  Receipt Date: 20181129
  Transmission Date: 20190205
  Serious: Yes (Other)
  Sender: FDA-Public Use
  Company Number: BE-SA-2018SA208309

PATIENT
  Age: 46 Year
  Sex: Male

DRUGS (1)
  1. ALEMTUZUMAB [Suspect]
     Active Substance: ALEMTUZUMAB
     Dosage: UNK UNK, UNK
     Route: 041

REACTIONS (4)
  - Infected cyst [Unknown]
  - Cyst [Unknown]
  - Swelling [Unknown]
  - Bone pain [Unknown]

NARRATIVE: CASE EVENT DATE: 20180723
